FAERS Safety Report 8273345-5 (Version None)
Quarter: 2012Q2

REPORT INFORMATION
  Report Type: 
  Country: None (occurrence: None)
  Receive Date: 20120411
  Receipt Date: 20120409
  Transmission Date: 20120825
  Serious: Yes (Death, Hospitalization)
  Sender: FDA-Public Use
  Company Number: PHHY2012BE028376

PATIENT
  Sex: Female

DRUGS (1)
  1. SANDOSTATIN LAR [Suspect]
     Indication: MALIGNANT PERITONEAL NEOPLASM
     Dosage: 30 MG, QMO
     Route: 030
     Dates: start: 20110415

REACTIONS (2)
  - SEPTIC SHOCK [None]
  - NEOPLASM MALIGNANT [None]
